FAERS Safety Report 13675964 (Version 2)
Quarter: 2017Q3

REPORT INFORMATION
  Report Type: Spontaneous
  Country: FR (occurrence: FR)
  Receive Date: 20170621
  Receipt Date: 20170713
  Transmission Date: 20171127
  Serious: No
  Sender: FDA-Public Use
  Company Number: FR-BRISTOL-MYERS SQUIBB COMPANY-BMS-2017-051824

PATIENT
  Age: 55 Year
  Sex: Male

DRUGS (1)
  1. NULOJIX [Suspect]
     Active Substance: BELATACEPT
     Indication: HEART TRANSPLANT REJECTION
     Dosage: UNK
     Route: 065
     Dates: start: 20170406

REACTIONS (1)
  - Product use in unapproved indication [Unknown]
